FAERS Safety Report 12342040 (Version 1)
Quarter: 2016Q2

REPORT INFORMATION
  Report Type: Spontaneous
  Country: US (occurrence: US)
  Receive Date: 20160506
  Receipt Date: 20160506
  Transmission Date: 20160815
  Serious: Yes (Other)
  Sender: FDA-Public Use
  Company Number: US-BAYER-2016-081707

PATIENT
  Age: 78 Year
  Sex: Female
  Weight: 58.5 kg

DRUGS (7)
  1. SUTENT [Suspect]
     Active Substance: SUNITINIB MALATE
     Indication: GASTROINTESTINAL STROMAL CANCER
     Dosage: 37.5 MG, QD
     Dates: start: 20150724
  2. SUTENT [Suspect]
     Active Substance: SUNITINIB MALATE
     Indication: GASTROINTESTINAL STROMAL CANCER
     Dosage: 37.5 MG, UNK
     Dates: start: 20150526
  3. SUTENT [Suspect]
     Active Substance: SUNITINIB MALATE
     Indication: GASTROINTESTINAL STROMAL CANCER
     Dosage: 37.5 MG, QD
     Dates: start: 20160316, end: 20160329
  4. CIPRO [Suspect]
     Active Substance: CIPROFLOXACIN HYDROCHLORIDE
     Dosage: UNK DF, UNK
  5. SUTENT [Suspect]
     Active Substance: SUNITINIB MALATE
     Indication: GASTROINTESTINAL STROMAL CANCER
     Dosage: 1 DF, QD
     Dates: start: 20150422, end: 20150508
  6. SUTENT [Suspect]
     Active Substance: SUNITINIB MALATE
     Indication: GASTROINTESTINAL STROMAL CANCER
     Dosage: 37.5 MG, QD
     Dates: start: 20150508
  7. SUTENT [Suspect]
     Active Substance: SUNITINIB MALATE
     Indication: GASTROINTESTINAL STROMAL CANCER
     Dosage: 37.5 MG, UNK
     Dates: start: 20150609, end: 20150710

REACTIONS (3)
  - Liver disorder [None]
  - Diarrhoea [None]
  - Staphylococcal skin infection [None]

NARRATIVE: CASE EVENT DATE: 20150425
